FAERS Safety Report 21532207 (Version 1)
Quarter: 2022Q4

REPORT INFORMATION
  Report Type: Spontaneous
  Country: IL (occurrence: IL)
  Receive Date: 20221101
  Receipt Date: 20221101
  Transmission Date: 20230113
  Serious: Yes (Other)
  Sender: FDA-Public Use
  Company Number: IL-SUN PHARMACEUTICAL INDUSTRIES LTD-2022R1-361230

PATIENT
  Sex: Female

DRUGS (1)
  1. VALACYCLOVIR [Suspect]
     Active Substance: VALACYCLOVIR HYDROCHLORIDE
     Indication: Infection
     Dosage: HIGH DOSE
     Route: 065

REACTIONS (3)
  - Exposure during pregnancy [Unknown]
  - Drug ineffective [Unknown]
  - Abortion induced [Unknown]
